FAERS Safety Report 13554196 (Version 1)
Quarter: 2017Q2

REPORT INFORMATION
  Report Type: Spontaneous
  Country: GB (occurrence: GB)
  Receive Date: 20170517
  Receipt Date: 20170517
  Transmission Date: 20170830
  Serious: Yes (Hospitalization, Other)
  Sender: FDA-Public Use
  Company Number: GB-PFIZER INC-2017212368

PATIENT
  Age: 77 Year

DRUGS (4)
  1. IBUPROFEN. [Suspect]
     Active Substance: IBUPROFEN
     Indication: OSTEOARTHRITIS
     Dosage: 400 MG, 3X/DAY (AT LEAST TWO YEARS)
     Route: 048
     Dates: end: 20170425
  2. PARACETAMOL [Concomitant]
     Active Substance: ACETAMINOPHEN
     Dosage: 1 G, 4X/DAY (FOUR TIMES DAILY)
  3. SILDENAFIL. [Concomitant]
     Active Substance: SILDENAFIL
  4. OMEPRAZOLE. [Concomitant]
     Active Substance: OMEPRAZOLE
     Dosage: 20 MG, UNK

REACTIONS (2)
  - Anaemia [Recovering/Resolving]
  - Upper gastrointestinal haemorrhage [Recovering/Resolving]
